FAERS Safety Report 8932694 (Version 1)
Quarter: 2012Q4

REPORT INFORMATION
  Report Type: 
  Country: US (occurrence: US)
  Receive Date: 20121128
  Receipt Date: 20121128
  Transmission Date: 20130627
  Serious: Yes (Hospitalization, Other)
  Sender: FDA-Public Use
  Company Number: US-TEVA-372115USA

PATIENT
  Age: 39 Year
  Sex: Female

DRUGS (1)
  1. COPAXONE [Suspect]
     Indication: MULTIPLE SCLEROSIS
     Dates: start: 20120906, end: 20121025

REACTIONS (3)
  - Dehydration [Recovered/Resolved]
  - Hepatitis [Recovered/Resolved]
  - Hepatic enzyme abnormal [Recovered/Resolved]
